FAERS Safety Report 8471478-1 (Version None)
Quarter: 2012Q2

REPORT INFORMATION
  Report Type: 
  Country: None (occurrence: None)
  Receive Date: 20120627
  Receipt Date: 20120620
  Transmission Date: 20120825
  Serious: Yes (Hospitalization)
  Sender: FDA-Public Use
  Company Number: JP-PFIZER INC-2012147915

PATIENT
  Age: 85 Year
  Sex: Female

DRUGS (1)
  1. DIFLUCAN [Suspect]
     Indication: CRYPTOCOCCOSIS
     Dosage: UNK
     Route: 042

REACTIONS (1)
  - HYPERKALAEMIA [None]
